FAERS Safety Report 15090658 (Version 2)
Quarter: 2018Q3

REPORT INFORMATION
  Report Type: Report from Study
  Country: US (occurrence: US)
  Receive Date: 20180629
  Receipt Date: 20180705
  Transmission Date: 20181010
  Serious: Yes (Life-Threatening, Hospitalization)
  Sender: FDA-Public Use
  Company Number: US-PFIZER INC-2018203094

PATIENT
  Age: 76 Year
  Sex: Male
  Weight: 59 kg

DRUGS (3)
  1. X4P?001 [Suspect]
     Active Substance: INVESTIGATIONAL PRODUCT
     Indication: RENAL CELL CARCINOMA
     Dosage: 400 MG, QD
     Route: 048
     Dates: start: 20171117, end: 20180408
  2. AXITINIB [Suspect]
     Active Substance: AXITINIB
     Indication: RENAL CELL CARCINOMA
     Dosage: 5 MG, BID
     Route: 048
     Dates: start: 20171117, end: 20180408
  3. NORMAL SALINE [Concomitant]
     Active Substance: SODIUM CHLORIDE
     Indication: DEHYDRATION
     Dosage: UNK, QOD
     Route: 042
     Dates: start: 20180409, end: 20180413

REACTIONS (2)
  - Dehydration [Recovered/Resolved]
  - Hypoglycaemia [Recovered/Resolved]

NARRATIVE: CASE EVENT DATE: 20180429
